FAERS Safety Report 6910060-1 (Version None)
Quarter: 2010Q3

REPORT INFORMATION
  Report Type: 
  Country: None (occurrence: None)
  Receive Date: 20100806
  Receipt Date: 20100727
  Transmission Date: 20110219
  Serious: Yes (Other)
  Sender: FDA-Public Use
  Company Number: DK-JNJFOC-20100407253

PATIENT
  Sex: Female
  Weight: 90 kg

DRUGS (9)
  1. REMICADE [Suspect]
     Indication: IRIDOCYCLITIS
     Dosage: 2 INFUSIONS
     Route: 042
  2. REMICADE [Suspect]
     Dosage: 2 INFUSIONS
     Route: 042
  3. REMICADE [Suspect]
     Indication: ANKYLOSING SPONDYLITIS
     Dosage: 2 INFUSIONS
     Route: 042
  4. REMICADE [Suspect]
     Dosage: 2 INFUSIONS
     Route: 042
  5. SALAZOPYRIN [Concomitant]
     Route: 048
  6. UNIKALK FORTE [Concomitant]
  7. SERACTIV [Concomitant]
     Indication: ANKYLOSING SPONDYLITIS
     Route: 048
  8. PARACETAMOL [Concomitant]
     Indication: ANKYLOSING SPONDYLITIS
  9. SULFASALAZINE [Concomitant]
     Indication: ANKYLOSING SPONDYLITIS
     Route: 048

REACTIONS (7)
  - ABDOMINAL PAIN [None]
  - ANAPHYLACTIC REACTION [None]
  - CHEST PAIN [None]
  - HAEMATOCHEZIA [None]
  - INFUSION RELATED REACTION [None]
  - OROPHARYNGEAL PAIN [None]
  - RECTAL TENESMUS [None]
